FAERS Safety Report 7650370-6 (Version None)
Quarter: 2011Q3

REPORT INFORMATION
  Report Type: 
  Country: None (occurrence: None)
  Receive Date: 20110802
  Receipt Date: 20110720
  Transmission Date: 20111222
  Serious: Yes (Hospitalization)
  Sender: FDA-Public Use
  Company Number: US-ASTRAZENECA-2007UW19659

PATIENT
  Age: 24 Year
  Sex: Female
  Weight: 99.8 kg

DRUGS (21)
  1. SEROQUEL [Suspect]
     Indication: AFFECTIVE DISORDER
     Route: 048
     Dates: start: 20000101, end: 20060101
  2. RISPERDAL [Concomitant]
     Dates: start: 20040311
  3. GEODON [Concomitant]
     Dates: start: 20030821
  4. SEROQUEL [Suspect]
     Dosage: 100 MG TO 500 MG
     Route: 048
     Dates: start: 20020401
  5. ABILIFY [Concomitant]
  6. CLOZAPINE [Concomitant]
  7. PROZAC [Concomitant]
     Dosage: 20 MG TO 40 MG
     Route: 048
     Dates: start: 20010604
  8. VPA [Concomitant]
     Dosage: 300 MG TO 500 MG
     Route: 048
     Dates: start: 20020401
  9. TOPAMAX [Concomitant]
     Route: 048
     Dates: start: 20020814
  10. HALDOL [Concomitant]
  11. XANAX [Concomitant]
  12. SEROQUEL [Suspect]
     Dosage: 100 MG TO 500 MG
     Route: 048
     Dates: start: 20020401
  13. SEROQUEL [Suspect]
     Route: 048
     Dates: start: 20051018
  14. SEROQUEL [Suspect]
     Route: 048
     Dates: start: 20051018
  15. DEPAKOTE ER [Concomitant]
     Indication: SLEEP DISORDER
     Dosage: 1000 MG TO 2550 MG
     Route: 048
     Dates: start: 20010716
  16. DEPAKOTE ER [Concomitant]
     Dates: start: 20041029
  17. SEROQUEL [Suspect]
     Indication: SLEEP DISORDER
     Route: 048
     Dates: start: 20000101, end: 20060101
  18. RISPERDAL [Concomitant]
     Route: 048
     Dates: start: 20030821
  19. AMBIEN [Concomitant]
     Route: 048
     Dates: start: 20010716
  20. ZYPREXA [Concomitant]
  21. TRAZODONE HYDROCHLORIDE [Concomitant]
     Indication: INSOMNIA
     Dosage: 100 MG TO 200 MG
     Route: 048
     Dates: start: 20010706

REACTIONS (12)
  - ANXIETY [None]
  - TYPE 2 DIABETES MELLITUS [None]
  - TYPE 1 DIABETES MELLITUS [None]
  - DEPRESSION [None]
  - BIPOLAR DISORDER [None]
  - OBESITY [None]
  - SCHIZOPHRENIA [None]
  - PERSONALITY DISORDER [None]
  - DIABETES MELLITUS [None]
  - MAJOR DEPRESSION [None]
  - BIPOLAR I DISORDER [None]
  - SCHIZOAFFECTIVE DISORDER [None]
